FAERS Safety Report 8345390-2 (Version None)
Quarter: 2012Q2

REPORT INFORMATION
  Report Type: 
  Country: None (occurrence: None)
  Receive Date: 20120508
  Receipt Date: 20120430
  Transmission Date: 20120825
  Serious: Yes (Disabling, Other)
  Sender: FDA-Public Use
  Company Number: US-CELGENEUS-163-20785-12031867

PATIENT
  Sex: Male
  Weight: 85.5 kg

DRUGS (8)
  1. PHOSLO [Concomitant]
     Dosage: 667 MILLIGRAM
     Route: 065
  2. OXYCONTIN [Concomitant]
     Indication: BACK PAIN
     Dosage: 10 MILLIGRAM
     Route: 065
  3. LEVOTHYROXINE SODIUM [Concomitant]
     Indication: HYPOTHYROIDISM
     Dosage: .5 MICROGRAM
     Route: 065
  4. DEXAMETHASONE [Concomitant]
     Indication: MULTIPLE MYELOMA
     Dosage: 4 MILLIGRAM
     Route: 065
     Dates: start: 20110912, end: 20120322
  5. THALOMID [Suspect]
     Indication: MULTIPLE MYELOMA
     Dosage: 100 MILLIGRAM
     Route: 048
     Dates: start: 20110919, end: 20120322
  6. ZOFRAN [Concomitant]
     Indication: NAUSEA
     Dosage: 4 MILLIGRAM
     Route: 065
  7. VELCADE [Concomitant]
     Indication: MULTIPLE MYELOMA
     Route: 065
     Dates: start: 20110912, end: 20120322
  8. VITAMIN B COMPLEX CAP [Concomitant]
     Dosage: 1
     Route: 065

REACTIONS (1)
  - RENAL FAILURE [None]
